FAERS Safety Report 8692828 (Version 4)
Quarter: 2013Q2

REPORT INFORMATION
  Report Type: Report from Study
  Country: US (occurrence: US)
  Receive Date: 20120730
  Receipt Date: 20130521
  Transmission Date: 20140414
  Serious: Yes (Hospitalization)
  Sender: FDA-Public Use
  Company Number: US-JNJFOC-20120712217

PATIENT
  Age: 17 Year
  Sex: Male
  Weight: 70.5 kg

DRUGS (9)
  1. REMICADE [Suspect]
     Indication: CROHN^S DISEASE
     Route: 042
     Dates: start: 20061113
  2. HUMIRA [Suspect]
     Indication: PRODUCT USED FOR UNKNOWN INDICATION
     Dates: start: 20070901
  3. ANTIBIOTICS [Suspect]
     Indication: INFLAMMATORY BOWEL DISEASE
  4. METHOTREXATE [Suspect]
     Indication: PRODUCT USED FOR UNKNOWN INDICATION
  5. FOLIC ACID [Concomitant]
  6. FERROUS SULFATE [Concomitant]
  7. ERGOCALCIFEROL [Concomitant]
  8. CALCIUM CARBONATE [Concomitant]
  9. VITAMIN D [Concomitant]

REACTIONS (2)
  - Crohn^s disease [Recovered/Resolved]
  - Anorectal disorder [Recovered/Resolved]
